FAERS Safety Report 11179787 (Version 1)
Quarter: 2015Q2

REPORT INFORMATION
  Report Type: Spontaneous
  Country: US (occurrence: US)
  Receive Date: 20150611
  Receipt Date: 20150611
  Transmission Date: 20150821
  Serious: Yes (Life-Threatening, Disabling)
  Sender: FDA-Public Use
  Company Number: US-BRISTOL-MYERS SQUIBB COMPANY-BMS-2015-035565

PATIENT
  Age: 53 Year
  Sex: Female

DRUGS (3)
  1. CYCLOPHOSPHAMIDE. [Suspect]
     Active Substance: CYCLOPHOSPHAMIDE
     Indication: HODGKIN^S DISEASE
     Route: 065
  2. CARMUSTINE [Suspect]
     Active Substance: CARMUSTINE
     Indication: HODGKIN^S DISEASE
     Route: 065
  3. ETOPOSIDE. [Suspect]
     Active Substance: ETOPOSIDE
     Indication: HODGKIN^S DISEASE
     Route: 065

REACTIONS (2)
  - Haemorrhagic infarction [Unknown]
  - Blindness [Unknown]
